FAERS Safety Report 25946471 (Version 1)
Quarter: 2025Q4

REPORT INFORMATION
  Report Type: Spontaneous
  Country: US (occurrence: US)
  Receive Date: 20251022
  Receipt Date: 20251022
  Transmission Date: 20260117
  Serious: No
  Sender: DR REDDYS
  Company Number: US-DRL-USA-USA/2025/10/015256

PATIENT
  Age: 74 Year
  Sex: Female

DRUGS (1)
  1. FLUOROURACIL [Suspect]
     Active Substance: FLUOROURACIL
     Indication: Neoplasm skin
     Dosage: TWO TIMES EVERY DAY FOR TWO WEEKS
     Route: 061

REACTIONS (1)
  - Inappropriate schedule of product administration [Unknown]
